FAERS Safety Report 7714621-1 (Version None)
Quarter: 2011Q3

REPORT INFORMATION
  Report Type: 
  Country: None (occurrence: None)
  Receive Date: 20110829
  Receipt Date: 20110824
  Transmission Date: 20111222
  Serious: No
  Sender: FDA-Public Use
  Company Number: US-PFIZER INC-2011180205

PATIENT
  Sex: Female
  Weight: 61.224 kg

DRUGS (3)
  1. NARDIL [Suspect]
     Dosage: 15 MG, DAILY
     Route: 048
  2. NARDIL [Suspect]
     Dosage: UNK
  3. NARDIL [Suspect]
     Indication: DEPRESSION
     Dosage: 45 MG, DAILY
     Route: 048
     Dates: start: 20110716

REACTIONS (4)
  - HYPERSOMNIA [None]
  - ASTHENIA [None]
  - MUSCULAR WEAKNESS [None]
  - ADVERSE DRUG REACTION [None]
